FAERS Safety Report 8083642-4 (Version None)
Quarter: 2012Q1

REPORT INFORMATION
  Report Type: 
  Country: None (occurrence: None)
  Receive Date: 20120127
  Receipt Date: 20110111
  Transmission Date: 20120608
  Serious: No
  Sender: FDA-Public Use
  Company Number: US-ABBOTT-11P-163-0696643-00

PATIENT
  Age: 45 Year
  Sex: Female

DRUGS (3)
  1. HUMIRA [Suspect]
     Indication: CROHN'S DISEASE
     Dates: start: 20100810, end: 20101101
  2. PENTASA [Concomitant]
     Indication: CROHN'S DISEASE
  3. SEROTONIN [Concomitant]
     Indication: STRESS

REACTIONS (2)
  - HERPES ZOSTER [None]
  - HEADACHE [None]
